FAERS Safety Report 8240674-0 (Version None)
Quarter: 2012Q1

REPORT INFORMATION
  Report Type: 
  Country: None (occurrence: None)
  Receive Date: 20120328
  Receipt Date: 20120322
  Transmission Date: 20120608
  Serious: Yes (Other)
  Sender: FDA-Public Use
  Company Number: US-PFIZER INC-2012075269

PATIENT
  Sex: Female
  Weight: 60.771 kg

DRUGS (8)
  1. CARVEDILOL [Concomitant]
     Dosage: UNK
  2. PULMICORT [Concomitant]
     Dosage: 180 MG, UNK
  3. LIPITOR [Suspect]
     Indication: BLOOD CHOLESTEROL INCREASED
     Dosage: UNK, 1X/DAY
     Route: 048
     Dates: start: 20030101, end: 20110101
  4. PROVENTIL GENTLEHALER [Concomitant]
     Dosage: UNK
  5. AMITRIPTYLINE [Concomitant]
     Dosage: 50 MG, UNK
  6. HYDROCHLOROTHIAZIDE [Concomitant]
     Dosage: UNK
  7. NEXIUM [Concomitant]
     Dosage: 50 MG, UNK
  8. PLAVIX [Concomitant]
     Dosage: UNK

REACTIONS (3)
  - ANKLE FRACTURE [None]
  - ACCIDENT [None]
  - IMPAIRED HEALING [None]
